FAERS Safety Report 6971461-9 (Version None)
Quarter: 2010Q3

REPORT INFORMATION
  Report Type: 
  Country: None (occurrence: None)
  Receive Date: 20100903
  Receipt Date: 20100819
  Transmission Date: 20110219
  Serious: Yes (Death, Hospitalization)
  Sender: FDA-Public Use
  Company Number: 2010003213

PATIENT
  Age: 46 Year
  Sex: Female

DRUGS (2)
  1. ERLOTINIB HYDROCHLORIDE [Suspect]
     Indication: BREAST CANCER
     Dosage: (150 MG, QD) ORAL
     Route: 048
     Dates: start: 20100101, end: 20100413
  2. BENDAMUSTINE (BENDAMUSTINE) [Suspect]
     Indication: BREAST CANCER
     Dosage: (234 MG), INTRAVENOUS
     Route: 042
     Dates: start: 20091228, end: 20100325

REACTIONS (10)
  - ANTIBIOTIC RESISTANT STAPHYLOCOCCUS TEST POSITIVE [None]
  - CANDIDA TEST POSITIVE [None]
  - CONFUSIONAL STATE [None]
  - HYPERKALAEMIA [None]
  - INAPPROPRIATE ANTIDIURETIC HORMONE SECRETION [None]
  - KLEBSIELLA TEST POSITIVE [None]
  - NAUSEA [None]
  - PANCYTOPENIA [None]
  - PNEUMONIA [None]
  - TRANSAMINASES INCREASED [None]
